FAERS Safety Report 9357606 (Version 1)
Quarter: 2013Q2

REPORT INFORMATION
  Report Type: Spontaneous
  Country: US (occurrence: US)
  Receive Date: 20130620
  Receipt Date: 20130620
  Transmission Date: 20140414
  Serious: Yes (Other)
  Sender: FDA-Public Use
  Company Number: US-BAYER-2013-075061

PATIENT
  Age: 45 Year
  Sex: Female

DRUGS (4)
  1. YAZ [Suspect]
     Dosage: UNK
     Dates: start: 20110106, end: 20110531
  2. YASMIN [Suspect]
     Dosage: UNK
     Dates: start: 20110106, end: 20110531
  3. OCELLA [Suspect]
     Dosage: UNK
     Dates: start: 20110106, end: 20110531
  4. GIANVI [Suspect]
     Dosage: UNK
     Dates: start: 20110106, end: 20110531

REACTIONS (3)
  - Cerebrovascular accident [None]
  - Injury [None]
  - Pain [None]
